FAERS Safety Report 12263298 (Version 1)
Quarter: 2016Q2

REPORT INFORMATION
  Report Type: Spontaneous
  Country: GB (occurrence: GB)
  Receive Date: 20160413
  Receipt Date: 20160413
  Transmission Date: 20160815
  Serious: Yes (Hospitalization)
  Sender: FDA-Public Use
  Company Number: GB-AMGEN-GBRSP2016045211

PATIENT
  Sex: Female

DRUGS (1)
  1. ARANESP [Suspect]
     Active Substance: DARBEPOETIN ALFA
     Indication: PRODUCT USED FOR UNKNOWN INDICATION
     Dosage: 80 MCG/0.4 ML
     Route: 065

REACTIONS (4)
  - Renal function test abnormal [Unknown]
  - Peripheral swelling [Unknown]
  - Fluid retention [Unknown]
  - Dyspnoea [Unknown]
